FAERS Safety Report 20107284 (Version 1)
Quarter: 2021Q4

REPORT INFORMATION
  Report Type: Spontaneous
  Country: US (occurrence: US)
  Receive Date: 20211124
  Receipt Date: 20211124
  Transmission Date: 20220303
  Serious: No
  Sender: FDA-Public Use
  Company Number: US-MYLANLABS-2021M1082989

PATIENT
  Sex: Female

DRUGS (1)
  1. ESTRADIOL TRANSDERMAL SYSTEM [Suspect]
     Active Substance: ESTRADIOL
     Indication: Product used for unknown indication
     Dosage: UNK, 1 PATCH FOR 7 DAYS
     Route: 062

REACTIONS (3)
  - Product adhesion issue [Not Recovered/Not Resolved]
  - Application site irritation [Not Recovered/Not Resolved]
  - Wrong technique in product usage process [Unknown]
